FAERS Safety Report 4831366-6 (Version None)
Quarter: 2005Q4

REPORT INFORMATION
  Report Type: 
  Country: None (occurrence: None)
  Receive Date: 20051118
  Receipt Date: 20050907
  Transmission Date: 20060501
  Serious: Yes (Hospitalization)
  Sender: FDA-Public Use
  Company Number: DSA_60505_2005

PATIENT
  Age: 4 Year
  Sex: Male
  Weight: 15.9 kg

DRUGS (2)
  1. LAMICTAL [Suspect]
     Route: 048
     Dates: start: 20050101
  2. DIASTAT [Suspect]
     Dosage: 10MG AS REQUIRED
     Route: 054

REACTIONS (15)
  - ABASIA [None]
  - ANTICONVULSANT DRUG LEVEL ABOVE THERAPEUTIC [None]
  - APHASIA [None]
  - CHOREA [None]
  - DRUG INEFFECTIVE [None]
  - DRUG INTERACTION [None]
  - DRUG TOXICITY [None]
  - DYSSTASIA [None]
  - EATING DISORDER [None]
  - ENCEPHALOPATHY [None]
  - FEELING DRUNK [None]
  - INSOMNIA [None]
  - LETHARGY [None]
  - STATUS EPILEPTICUS [None]
  - STUPOR [None]
